FAERS Safety Report 10328807 (Version 1)
Quarter: 2014Q3

REPORT INFORMATION
  Report Type: Spontaneous
  Country: FR (occurrence: FR)
  Receive Date: 20140721
  Receipt Date: 20140721
  Transmission Date: 20150326
  Serious: Yes (Hospitalization)
  Sender: FDA-Public Use
  Company Number: PHHY2014FR086878

PATIENT
  Age: 7 Year

DRUGS (1)
  1. TRAMADOL [Suspect]
     Active Substance: TRAMADOL

REACTIONS (16)
  - Crepitations [Recovered/Resolved]
  - Cardiogenic shock [Recovered/Resolved]
  - Left ventricular dysfunction [Recovered/Resolved]
  - Mitral valve incompetence [Recovered/Resolved]
  - Cardiac output decreased [Recovered/Resolved]
  - Tachycardia [Recovered/Resolved]
  - Toxicity to various agents [Recovered/Resolved]
  - Convulsion [Recovered/Resolved]
  - Hypotension [Recovered/Resolved]
  - Inferior vena cava dilatation [Recovered/Resolved]
  - Troponin increased [Recovered/Resolved]
  - Respiratory distress [Recovered/Resolved]
  - Blood lactic acid increased [Recovered/Resolved]
  - Acute pulmonary oedema [Recovered/Resolved]
  - Sputum discoloured [Recovered/Resolved]
  - Hepatomegaly [Recovered/Resolved]
